FAERS Safety Report 5996566-0 (Version None)
Quarter: 2008Q4

REPORT INFORMATION
  Report Type: 
  Country: None (occurrence: None)
  Receive Date: 20081212
  Receipt Date: 20081107
  Transmission Date: 20090506
  Serious: No
  Sender: FDA-Public Use
  Company Number: US-ABBOTT-08P-163-0482894-00

PATIENT
  Sex: Female
  Weight: 124.85 kg

DRUGS (16)
  1. HUMIRA [Suspect]
     Indication: RHEUMATOID ARTHRITIS
     Route: 004
     Dates: start: 20081001
  2. VIETA PEN [Concomitant]
     Indication: DIABETES MELLITUS
     Route: 058
     Dates: start: 20060401
  3. METHOTREXATE [Concomitant]
     Indication: RHEUMATOID ARTHRITIS
     Route: 058
     Dates: start: 20080501
  4. HYZOR [Concomitant]
     Indication: HYPERTENSION
     Dosage: 50/12.5 MG
     Route: 048
     Dates: start: 20010101
  5. THYROID TAB [Concomitant]
     Indication: HYPOTHYROIDISM
     Route: 048
     Dates: start: 20060401
  6. METFORMIN HCL [Concomitant]
     Indication: DIABETES MELLITUS
     Route: 048
     Dates: start: 19960101
  7. RETINOL [Concomitant]
     Indication: VITAMIN SUPPLEMENTATION
     Route: 048
     Dates: start: 20080501
  8. POTASSIUM CHLORIDE [Concomitant]
     Indication: MINERAL SUPPLEMENTATION
     Route: 048
     Dates: start: 19960101
  9. ALUDROX [Concomitant]
     Indication: MINERAL SUPPLEMENTATION
     Route: 048
     Dates: start: 19960101
  10. NICOTINIC ACID [Concomitant]
     Indication: BLOOD TRIGLYCERIDES INCREASED
     Route: 048
     Dates: start: 20010101
  11. LOBID [Concomitant]
     Indication: HYPERTENSION
     Route: 048
     Dates: start: 19960101
  12. SPIRONOLACTONE [Concomitant]
     Indication: FLUID RETENTION
     Route: 048
     Dates: start: 20070101
  13. MONTELUKAST SODIUM [Concomitant]
     Indication: ASTHMA
     Dates: start: 20060101
  14. ESOMEPRAZOLE MAGNESIUM [Concomitant]
     Indication: GASTROOESOPHAGEAL REFLUX DISEASE
     Route: 048
  15. CELECOXIB [Concomitant]
     Indication: OSTEOARTHRITIS
     Route: 048
     Dates: start: 20080401
  16. CIMETIDINE [Concomitant]
     Indication: GASTROOESOPHAGEAL REFLUX DISEASE
     Route: 048

REACTIONS (5)
  - DRUG DELIVERY SYSTEM MALFUNCTION [None]
  - INCORRECT DOSE ADMINISTERED [None]
  - INJECTION SITE EXTRAVASATION [None]
  - INJECTION SITE HAEMORRHAGE [None]
  - INJECTION SITE PAIN [None]
